FAERS Safety Report 22398310 (Version 2)
Quarter: 2023Q2

REPORT INFORMATION
  Report Type: Report from Study
  Country: US (occurrence: US)
  Receive Date: 20230602
  Receipt Date: 20230612
  Transmission Date: 20230721
  Serious: Yes (Other)
  Sender: FDA-Public Use
  Company Number: US-GILEAD-2023-0629133

PATIENT
  Age: 87 Year
  Sex: Female

DRUGS (3)
  1. AZTREONAM LYSINE [Suspect]
     Active Substance: AZTREONAM LYSINE
     Indication: Bronchiectasis
     Dosage: UNK, TID (INHALE 1 VIAL VIA NEBULIZER THREE TIMES DAILY FOR 28 DAYS ON / 28 DAYS OFF)
     Route: 055
     Dates: start: 20230517
  2. AZTREONAM LYSINE [Suspect]
     Active Substance: AZTREONAM LYSINE
     Indication: Pseudomonas infection
     Dosage: 75 MG (28 DAYS ON AND 28 DAYS OFF. 84 VIALS  )
     Route: 055
     Dates: start: 20230521
  3. AZTREONAM LYSINE [Suspect]
     Active Substance: AZTREONAM LYSINE
     Indication: Cystic fibrosis

REACTIONS (4)
  - Pseudomonas infection [Unknown]
  - Productive cough [Unknown]
  - Hypoacusis [Unknown]
  - Off label use [Not Recovered/Not Resolved]

NARRATIVE: CASE EVENT DATE: 20230517
